FAERS Safety Report 21612503 (Version 1)
Quarter: 2022Q4

REPORT INFORMATION
  Report Type: Spontaneous
  Country: FR (occurrence: FR)
  Receive Date: 20221118
  Receipt Date: 20221118
  Transmission Date: 20230113
  Serious: Yes (Hospitalization)
  Sender: FDA-Public Use
  Company Number: None

PATIENT
  Age: 72 Year
  Sex: Male
  Weight: 91 kg

DRUGS (2)
  1. METHOTREXATE [Suspect]
     Active Substance: METHOTREXATE
     Indication: Psoriasis
     Dosage: 7.5MG PER WEEK, UNIT DOSE : 7.5 MG, FREQUENCY TIME : 1 WEEKS, DURATION : 3 YEARS
     Route: 065
     Dates: start: 2019, end: 202205
  2. TREMFYA [Suspect]
     Active Substance: GUSELKUMAB
     Indication: Psoriasis
     Dosage: FORM STRENGTH : 100MG, UNIT DOSE: 1 DOSAGE FORMS, FREQUENCY TIME : 8 WEEKS
     Route: 065
     Dates: start: 20220516, end: 20220516

REACTIONS (1)
  - Lung adenocarcinoma [Recovering/Resolving]

NARRATIVE: CASE EVENT DATE: 20220615
